FAERS Safety Report 8777826 (Version 2)
Quarter: 2012Q4

REPORT INFORMATION
  Report Type: 
  Country: CA (occurrence: CA)
  Receive Date: 20120911
  Receipt Date: 20120911
  Transmission Date: 20130627
  Serious: Yes (Other)
  Sender: FDA-Public Use
  Company Number: PHHY2012CA028321

PATIENT
  Sex: Female

DRUGS (1)
  1. SANDOSTATIN LAR [Suspect]
     Indication: NEUROENDOCRINE TUMOUR
     Dosage: 40 mg, Every 4 weeks
     Route: 030
     Dates: start: 20120329

REACTIONS (4)
  - Paralysis [Unknown]
  - Hypoaesthesia [Unknown]
  - Abdominal pain [Unknown]
  - Frequent bowel movements [Unknown]
